FAERS Safety Report 9521156 (Version 1)
Quarter: 2013Q3

REPORT INFORMATION
  Report Type: Spontaneous
  Country: DE (occurrence: None)
  Receive Date: 20130911
  Receipt Date: 20130911
  Transmission Date: 20140515
  Serious: Yes (Hospitalization, Other)
  Sender: FDA-Public Use
  Company Number: AEDEU201300082

PATIENT
  Age: 62 Year
  Sex: Male
  Weight: 72 kg

DRUGS (2)
  1. GAMUNEX [Suspect]
     Indication: CHRONIC INFLAMMATORY DEMYELINATING POLYRADICULONEUROPATHY
     Route: 042
     Dates: start: 20121217
  2. LYRICA [Concomitant]

REACTIONS (6)
  - Skin exfoliation [None]
  - Rash generalised [None]
  - Pruritus [None]
  - Pityriasis rosea [None]
  - Eczema [None]
  - Hypersensitivity [None]
